FAERS Safety Report 24869849 (Version 1)
Quarter: 2025Q1

REPORT INFORMATION
  Report Type: Spontaneous
  Country: CA (occurrence: CA)
  Receive Date: 20250121
  Receipt Date: 20250121
  Transmission Date: 20250409
  Serious: Yes (Life-Threatening, Hospitalization, Other)
  Sender: PFIZER
  Company Number: CA-PFIZER INC-202500010966

PATIENT
  Age: 12 Year
  Sex: Female
  Weight: 51 kg

DRUGS (2)
  1. CYTARABINE [Suspect]
     Active Substance: CYTARABINE
     Dosage: 1500 MG, 2X/DAY (1 EVERY 12 HOURS)
     Route: 042
  2. DAUNORUBICIN [Suspect]
     Active Substance: DAUNORUBICIN
     Route: 042

REACTIONS (2)
  - Aplastic anaemia [Recovered/Resolved]
  - Neutropenia [Recovered/Resolved]
